FAERS Safety Report 17446523 (Version 1)
Quarter: 2020Q1

REPORT INFORMATION
  Report Type: Report from Study
  Country: US (occurrence: US)
  Receive Date: 20200221
  Receipt Date: 20200221
  Transmission Date: 20200409
  Serious: Yes (Other)
  Sender: FDA-Public Use
  Company Number: US-ACTELION-A-NJ2019-197926

PATIENT
  Sex: Female
  Weight: 61.22 kg

DRUGS (2)
  1. SILDENAFIL CITRATE. [Concomitant]
     Active Substance: SILDENAFIL CITRATE
  2. OPSUMIT [Suspect]
     Active Substance: MACITENTAN
     Indication: PULMONARY HYPERTENSION
     Dosage: 10 MG, QD
     Route: 048

REACTIONS (13)
  - Nasal congestion [Unknown]
  - Lower respiratory tract congestion [Unknown]
  - Hepatic cirrhosis [Unknown]
  - Headache [Unknown]
  - Eating disorder [Unknown]
  - Anaemia [Unknown]
  - Labyrinthitis [Unknown]
  - Emotional distress [Unknown]
  - Fluid retention [Unknown]
  - Exercise tolerance decreased [Unknown]
  - Dizziness [Unknown]
  - Chest discomfort [Unknown]
  - Presyncope [Unknown]
